FAERS Safety Report 6373649-7 (Version None)
Quarter: 2009Q3

REPORT INFORMATION
  Report Type: 
  Country: None (occurrence: None)
  Receive Date: 20090924
  Receipt Date: 20090911
  Transmission Date: 20100115
  Serious: Yes (Other)
  Sender: FDA-Public Use
  Company Number: JP-PFIZER INC-2009271898

PATIENT
  Age: 84 Year

DRUGS (1)
  1. ZOLOFT [Suspect]
     Indication: DEPRESSION
     Dosage: 25 MG IN THE MORNING AND 50 MG IN EVENING
     Route: 048

REACTIONS (6)
  - ANAEMIA [None]
  - DIZZINESS [None]
  - FALL [None]
  - FEMUR FRACTURE [None]
  - HAEMORRHAGE [None]
  - THROMBOSIS [None]
